FAERS Safety Report 7875290-3 (Version None)
Quarter: 2011Q4

REPORT INFORMATION
  Report Type: 
  Country: None (occurrence: None)
  Receive Date: 20111031
  Receipt Date: 20111024
  Transmission Date: 20120403
  Serious: Yes (Other)
  Sender: FDA-Public Use
  Company Number: US-AMGEN-USASP2011055221

PATIENT
  Age: 50 Year

DRUGS (5)
  1. HUMIRA [Suspect]
     Dosage: 40 MG, Q2WK
     Dates: end: 20110601
  2. ENBREL [Suspect]
     Indication: PSORIASIS
     Dosage: 50 MG, 2 TIMES/WK
     Dates: start: 20110801
  3. ENBREL [Suspect]
     Indication: PSORIATIC ARTHROPATHY
  4. HUMIRA [Suspect]
     Indication: PSORIATIC ARTHROPATHY
     Dosage: 40 MG, ONE TIME DOSE
     Dates: start: 20100101
  5. HUMIRA [Suspect]
     Indication: PSORIASIS
     Dosage: 80 MG, ONE TIME DOSE
     Dates: start: 20101001, end: 20101001

REACTIONS (5)
  - MUSCULOSKELETAL DISORDER [None]
  - MOBILITY DECREASED [None]
  - DEPRESSION [None]
  - DYSARTHRIA [None]
  - DIPLOPIA [None]
